FAERS Safety Report 9223560 (Version 1)
Quarter: 2013Q2

REPORT INFORMATION
  Report Type: Spontaneous
  Country: CA (occurrence: CA)
  Receive Date: 20130410
  Receipt Date: 20130410
  Transmission Date: 20140414
  Serious: Yes (Death)
  Sender: FDA-Public Use
  Company Number: CA-GLAXOSMITHKLINE-A1018628A

PATIENT
  Age: 71 Year
  Sex: Female

DRUGS (7)
  1. FLOLAN [Suspect]
     Indication: PULMONARY ARTERIAL HYPERTENSION
     Dosage: 4.5MG PER DAY
     Route: 042
     Dates: start: 20080717
  2. FLOLAN DILUENT [Suspect]
  3. VITAMIN D [Concomitant]
  4. TYLENOL EXTRA STRENGTH [Concomitant]
  5. GRAVOL [Concomitant]
  6. IMODIUM [Concomitant]
  7. CLARITIN [Concomitant]

REACTIONS (2)
  - Death [Fatal]
  - Malaise [Unknown]
